FAERS Safety Report 17707772 (Version 2)
Quarter: 2020Q2

REPORT INFORMATION
  Report Type: Spontaneous
  Country: CA (occurrence: CA)
  Receive Date: 20200424
  Receipt Date: 20200428
  Transmission Date: 20200714
  Serious: Yes (Life-Threatening, Hospitalization, Other)
  Sender: FDA-Public Use
  Company Number: CA-BAXTER-2020BAX008530

PATIENT
  Age: 69 Year
  Sex: Male
  Weight: 65 kg

DRUGS (16)
  1. DIANEAL LOW CALCIUM PERITONEAL DIALYSIS SOLUTION WITH DEXTROSE [Suspect]
     Active Substance: CALCIUM CHLORIDE\DEXTROSE\MAGNESIUM CHLORIDE\SODIUM CHLORIDE\SODIUM LACTATE
     Indication: EVIDENCE BASED TREATMENT
  2. EZETIMIBE. [Concomitant]
     Active Substance: EZETIMIBE
     Indication: PRODUCT USED FOR UNKNOWN INDICATION
     Dosage: TABLETS
     Route: 048
  3. PYRIDOXINE [Concomitant]
     Active Substance: PYRIDOXINE
     Indication: LATENT TUBERCULOSIS
     Route: 048
  4. CEFUROXIME. [Suspect]
     Active Substance: CEFUROXIME
     Indication: EVIDENCE BASED TREATMENT
  5. ISONIAZID. [Concomitant]
     Active Substance: ISONIAZID
     Indication: LATENT TUBERCULOSIS
     Route: 065
  6. CEFUROXIME. [Suspect]
     Active Substance: CEFUROXIME
     Indication: UPPER RESPIRATORY TRACT INFECTION
     Route: 048
  7. DARBEPOETIN ALFA [Concomitant]
     Active Substance: DARBEPOETIN ALFA
     Indication: PRODUCT USED FOR UNKNOWN INDICATION
     Route: 058
  8. LAXASENE [Concomitant]
     Active Substance: HERBALS\SENNA LEAF\SENNOSIDES
     Indication: PRODUCT USED FOR UNKNOWN INDICATION
     Dosage: CAPSULE, HARD
     Route: 048
  9. TRETINOIN. [Concomitant]
     Active Substance: TRETINOIN
     Indication: ACUTE PROMYELOCYTIC LEUKAEMIA
     Route: 065
  10. DIANEAL LOW CALCIUM PERITONEAL DIALYSIS SOLUTION WITH DEXTROSE [Suspect]
     Active Substance: CALCIUM CHLORIDE\DEXTROSE\MAGNESIUM CHLORIDE\SODIUM CHLORIDE\SODIUM LACTATE
     Indication: PERITONEAL DIALYSIS
     Route: 033
  11. LASIX [Suspect]
     Active Substance: FUROSEMIDE
     Indication: PRODUCT USED FOR UNKNOWN INDICATION
     Route: 048
  12. CALCIUM CARBONATE. [Concomitant]
     Active Substance: CALCIUM CARBONATE
     Indication: PRODUCT USED FOR UNKNOWN INDICATION
     Dosage: NNNNN
     Route: 048
  13. FERROUS FUMARATE [Concomitant]
     Active Substance: FERROUS FUMARATE
     Indication: PRODUCT USED FOR UNKNOWN INDICATION
     Route: 065
  14. LASIX [Suspect]
     Active Substance: FUROSEMIDE
     Route: 048
  15. ARSENIC [Concomitant]
     Active Substance: ARSENIC
     Indication: ACUTE PROMYELOCYTIC LEUKAEMIA
     Route: 065
  16. NYSTATIN. [Concomitant]
     Active Substance: NYSTATIN
     Indication: PRODUCT USED FOR UNKNOWN INDICATION
     Route: 048

REACTIONS (15)
  - Cardiac failure congestive [Recovered/Resolved]
  - Ischaemic hepatitis [Recovered/Resolved]
  - Renal injury [Recovered/Resolved]
  - Fluid overload [Recovered/Resolved]
  - Oedema peripheral [Recovered/Resolved]
  - Right ventricular systolic pressure increased [Recovered/Resolved]
  - Hypovolaemia [Recovered/Resolved]
  - Fatigue [Recovered/Resolved]
  - Pneumonia [Recovered/Resolved]
  - Pericardial effusion [Recovered/Resolved]
  - Thrombocytopenia [Recovered/Resolved]
  - Upper respiratory tract infection [Recovered/Resolved]
  - Tricuspid valve incompetence [Recovered/Resolved]
  - Mitral valve incompetence [Recovered/Resolved]
  - Diarrhoea [Recovered/Resolved]
